FAERS Safety Report 10530576 (Version 1)
Quarter: 2014Q4

REPORT INFORMATION
  Report Type: Spontaneous
  Country: US (occurrence: None)
  Receive Date: 20141020
  Receipt Date: 20141020
  Transmission Date: 20150528
  Serious: Yes (Other)
  Sender: FDA-Public Use
  Company Number: None

PATIENT
  Age: 43 Year
  Sex: Female

DRUGS (1)
  1. AVONEX [Suspect]
     Active Substance: INTERFERON BETA-1A
     Indication: MULTIPLE SCLEROSIS
     Dosage: AVONEX 30 MCG INJECTABLE WEEKLY
     Dates: start: 20130910

REACTIONS (3)
  - Drug ineffective [None]
  - Myalgia [None]
  - Chest pain [None]

NARRATIVE: CASE EVENT DATE: 20140916
